FAERS Safety Report 8297717 (Version 5)
Quarter: 2013Q2

REPORT INFORMATION
  Report Type: Spontaneous
  Country: US (occurrence: None)
  Receive Date: 20111122
  Receipt Date: 20120426
  Transmission Date: 20140414
  Serious: Yes (Other)
  Sender: FDA-Public Use
  Company Number: PHHY2011US20318

PATIENT
  Age: 50 Year
  Sex: Female

DRUGS (2)
  1. GILENYA [Suspect]
     Indication: MULTIPLE SCLEROSIS
     Dosage: 0.5 MG, QD, ORAL
     Route: 048
     Dates: start: 20101220, end: 20110503
  2. ALEVE [Concomitant]

REACTIONS (8)
  - CHEST DISCOMFORT [None]
  - MUSCULAR WEAKNESS [None]
  - ANXIETY [None]
  - DYSPNOEA [None]
  - BACK PAIN [None]
  - Dizziness [None]
  - Speech disorder [None]
  - Aphasia [None]
